FAERS Safety Report 20985924 (Version 4)
Quarter: 2023Q1

REPORT INFORMATION
  Report Type: Spontaneous
  Country: US (occurrence: US)
  Receive Date: 20220621
  Receipt Date: 20230301
  Transmission Date: 20230418
  Serious: Yes (Hospitalization, Other)
  Sender: FDA-Public Use
  Company Number: US-SA-SAC20220616001884

PATIENT
  Age: 5 Year
  Sex: Female

DRUGS (2)
  1. LUMIZYME [Suspect]
     Active Substance: ALGLUCOSIDASE ALFA
     Indication: Glycogen storage disease type II
     Dosage: 650 MG, QW
     Route: 042
     Dates: start: 202201
  2. HIZENTRA [Concomitant]
     Active Substance: HUMAN IMMUNOGLOBULIN G
     Dosage: INFUSE 5GM (25ML)
     Route: 058

REACTIONS (3)
  - Device related infection [Not Recovered/Not Resolved]
  - Catheter site injury [Not Recovered/Not Resolved]
  - Infusion site discomfort [Unknown]
